FAERS Safety Report 9122654 (Version 5)
Quarter: 2014Q3

REPORT INFORMATION
  Report Type: Spontaneous
  Country: US (occurrence: US)
  Receive Date: 20130115
  Receipt Date: 20140723
  Transmission Date: 20150326
  Serious: Yes (Hospitalization, Other)
  Sender: FDA-Public Use
  Company Number: US-009507513-1301USA005232

PATIENT
  Sex: Female
  Weight: 56.69 kg

DRUGS (3)
  1. NUVARING [Suspect]
     Active Substance: ETHINYL ESTRADIOL\ETONOGESTREL
     Indication: CONTRACEPTION
     Dosage: 3 WEEKS IN, ONE WEEK OUT
     Route: 067
     Dates: start: 20110207, end: 20110915
  2. CYMBALTA [Concomitant]
     Active Substance: DULOXETINE HYDROCHLORIDE
     Indication: DEPRESSION
     Dosage: UNK
     Dates: start: 2006
  3. SEROQUEL [Concomitant]
     Active Substance: QUETIAPINE FUMARATE
     Indication: DEPRESSION
     Dosage: UNK
     Dates: start: 2006

REACTIONS (7)
  - Chest pain [Not Recovered/Not Resolved]
  - Pulmonary embolism [Recovering/Resolving]
  - Treatment noncompliance [Unknown]
  - Maternal exposure before pregnancy [Unknown]
  - Coagulopathy [Unknown]
  - Cardiolipin antibody positive [Unknown]
  - Deep vein thrombosis [Unknown]

NARRATIVE: CASE EVENT DATE: 20110913
